FAERS Safety Report 8313226-1 (Version None)
Quarter: 2012Q2

REPORT INFORMATION
  Report Type: 
  Country: None (occurrence: None)
  Receive Date: 20120426
  Receipt Date: 20120416
  Transmission Date: 20120825
  Serious: Yes (Other)
  Sender: FDA-Public Use
  Company Number: IT-MPIJNJ-2012-02626

PATIENT

DRUGS (6)
  1. VELCADE [Suspect]
     Indication: MULTIPLE MYELOMA
     Dosage: UNK
  2. THALIDOMIDE [Suspect]
     Indication: MULTIPLE MYELOMA
  3. MELPHALAN HYDROCHLORIDE [Suspect]
     Indication: MULTIPLE MYELOMA
     Dosage: UNK
  4. PREDNISONE TAB [Suspect]
     Indication: MULTIPLE MYELOMA
  5. DEXAMETHASONE [Concomitant]
     Indication: MULTIPLE MYELOMA
  6. LENALIDOMIDE [Concomitant]
     Indication: MULTIPLE MYELOMA

REACTIONS (1)
  - MYELODYSPLASTIC SYNDROME [None]
